FAERS Safety Report 25143399 (Version 1)
Quarter: 2025Q2

REPORT INFORMATION
  Report Type: Spontaneous
  Country: FR (occurrence: FR)
  Receive Date: 20250401
  Receipt Date: 20250401
  Transmission Date: 20250717
  Serious: Yes (Other)
  Sender: AMGEN
  Company Number: FR-BEH-2025200126

PATIENT
  Age: 60 Year
  Sex: Female

DRUGS (4)
  1. TAVNEOS [Suspect]
     Active Substance: AVACOPAN
     Indication: Product used for unknown indication
     Route: 065
  2. RITUXIMAB [Concomitant]
     Active Substance: RITUXIMAB
     Indication: Antineutrophil cytoplasmic antibody
  3. DOXYCYCLINE [Concomitant]
     Active Substance: DOXYCYCLINE
  4. AMIKACIN [Concomitant]
     Active Substance: AMIKACIN

REACTIONS (4)
  - Bartonella test positive [Unknown]
  - Endocarditis [Unknown]
  - Unevaluable event [Unknown]
  - Off label use [Unknown]
